FAERS Safety Report 21470535 (Version 1)
Quarter: 2022Q4

REPORT INFORMATION
  Report Type: Spontaneous
  Country: US (occurrence: None)
  Receive Date: 20221017
  Receipt Date: 20221017
  Transmission Date: 20230113
  Serious: No
  Sender: FDA-Public Use
  Company Number: None

PATIENT
  Age: 43 Year
  Sex: Male

DRUGS (1)
  1. REBIF [Suspect]
     Active Substance: INTERFERON BETA-1A
     Indication: Multiple sclerosis
     Dosage: 44MCG 3 TIMES A WEEK SUBCUTANEOUS?
     Route: 058
     Dates: start: 202209

REACTIONS (2)
  - Peripheral swelling [None]
  - Burning sensation [None]

NARRATIVE: CASE EVENT DATE: 20220901
